FAERS Safety Report 5336824-6 (Version None)
Quarter: 2007Q2

REPORT INFORMATION
  Report Type: 
  Country: None (occurrence: None)
  Receive Date: 20070524
  Receipt Date: 20070524
  Transmission Date: 20071010
  Serious: Yes (Other)
  Sender: FDA-Public Use
  Company Number: None

PATIENT
  Age: 60 Year
  Sex: Male
  Weight: 86.2 kg

DRUGS (1)
  1. ENOXAPARIN SODIUM [Suspect]
     Indication: DEEP VEIN THROMBOSIS
     Dosage: 80 MG SQ BID
     Route: 058
     Dates: start: 20070110

REACTIONS (5)
  - BRONCHOSCOPY [None]
  - COUGH [None]
  - HAEMOPTYSIS [None]
  - HAEMORRHAGE [None]
  - PULMONARY HAEMORRHAGE [None]
